FAERS Safety Report 5017687-5 (Version None)
Quarter: 2006Q2

REPORT INFORMATION
  Report Type: 
  Country: None (occurrence: None)
  Receive Date: 20060525
  Receipt Date: 20060515
  Transmission Date: 20061013
  Serious: Yes (Other)
  Sender: FDA-Public Use
  Company Number: 2006S1004391

PATIENT
  Age: 76 Year
  Sex: Female

DRUGS (7)
  1. FENTANYL TRANSDERMAL SYSTEM [Suspect]
     Indication: PAIN
     Dosage: 25 UG/HR;Q3D;TRANS
     Route: 062
     Dates: start: 20060501, end: 20060513
  2. FENTANYL TRANSDERMAL SYSTEM [Suspect]
     Indication: RIB FRACTURE
     Dosage: 25 UG/HR;Q3D;TRANS
     Route: 062
     Dates: start: 20060501, end: 20060513
  3. FENTANYL TRANSDERMAL SYSTEM [Suspect]
     Indication: PAIN
     Dosage: 25 UG/HR;Q3D;TRANS
     Route: 062
     Dates: start: 20060513, end: 20060515
  4. FENTANYL TRANSDERMAL SYSTEM [Suspect]
     Indication: RIB FRACTURE
     Dosage: 25 UG/HR;Q3D;TRANS
     Route: 062
     Dates: start: 20060513, end: 20060515
  5. LEVOTHYROXINE SODIUM [Concomitant]
  6. ESTROGENS CONJUGATED [Concomitant]
  7. VITAMINS [Concomitant]

REACTIONS (1)
  - HYPERVENTILATION [None]
